FAERS Safety Report 6672505-4 (Version None)
Quarter: 2010Q2

REPORT INFORMATION
  Report Type: 
  Country: None (occurrence: None)
  Receive Date: 20100408
  Receipt Date: 20100405
  Transmission Date: 20101027
  Serious: Yes (Life-Threatening, Hospitalization, Other)
  Sender: FDA-Public Use
  Company Number: JP-WYE-H13909810

PATIENT
  Sex: Male
  Weight: 52 kg

DRUGS (17)
  1. ZOSYN [Suspect]
     Indication: ARTHRITIS
     Route: 041
     Dates: start: 20100108, end: 20100209
  2. ZOSYN [Suspect]
     Indication: PURULENCE
  3. VEGETAMIN [Concomitant]
     Indication: NEUROSIS
     Route: 048
     Dates: end: 20100210
  4. TRIHEXYPHENIDYL HCL [Concomitant]
     Indication: PARKINSONISM
     Route: 048
     Dates: end: 20100210
  5. SILECE [Concomitant]
     Indication: INSOMNIA
     Route: 048
     Dates: end: 20100210
  6. SEROQUEL [Concomitant]
     Indication: SCHIZOPHRENIA
     Route: 048
     Dates: end: 20100210
  7. MAGNESIUM OXIDE [Concomitant]
     Indication: CONSTIPATION
     Route: 048
     Dates: end: 20100210
  8. CLOSTRIDIUM BUTYRICUM [Concomitant]
     Indication: INTESTINAL FUNCTIONAL DISORDER
     Route: 048
     Dates: end: 20100210
  9. HIRNAMIN [Concomitant]
     Indication: SCHIZOPHRENIA
     Route: 048
     Dates: end: 20100210
  10. ZOPICLONE [Concomitant]
     Indication: INSOMNIA
     Route: 048
     Dates: end: 20100210
  11. LANSOPRAZOLE [Concomitant]
     Indication: DRUG USE FOR UNKNOWN INDICATION
     Dosage: UNKNOWN
     Dates: end: 20100210
  12. POLARAMINE [Concomitant]
     Indication: DRUG USE FOR UNKNOWN INDICATION
     Dosage: UNKNOWN
     Dates: end: 20100210
  13. LOXONIN [Concomitant]
     Indication: DRUG USE FOR UNKNOWN INDICATION
     Dosage: UNKNOWN
     Dates: end: 20100210
  14. SELBEX [Concomitant]
     Indication: DRUG USE FOR UNKNOWN INDICATION
     Dosage: UNKNOWN
     Route: 048
     Dates: end: 20100210
  15. SOLDACTONE [Concomitant]
     Indication: DRUG USE FOR UNKNOWN INDICATION
     Dosage: UNKNOWN
     Route: 042
     Dates: end: 20100210
  16. STRONG NEO-MINOPHAGEN C [Concomitant]
     Indication: DRUG USE FOR UNKNOWN INDICATION
     Dosage: UNKNOWN
     Route: 042
     Dates: end: 20100210
  17. METILON [Concomitant]
     Indication: PYREXIA
     Dosage: UNKNOWN
     Route: 042
     Dates: start: 20100206, end: 20100208

REACTIONS (2)
  - DISSEMINATED INTRAVASCULAR COAGULATION [None]
  - SEPSIS [None]
